FAERS Safety Report 18418926 (Version 2)
Quarter: 2020Q4

REPORT INFORMATION
  Report Type: Spontaneous
  Country: US (occurrence: US)
  Receive Date: 20201023
  Receipt Date: 20201224
  Transmission Date: 20210114
  Serious: Yes (Death, Other)
  Sender: FDA-Public Use
  Company Number: US-STRIDES ARCOLAB LIMITED-2020SP012731

PATIENT
  Age: 63 Year
  Sex: Male

DRUGS (7)
  1. TACROLIMUS. [Suspect]
     Active Substance: TACROLIMUS
     Indication: PROPHYLAXIS AGAINST GRAFT VERSUS HOST DISEASE
     Dosage: 2 MILLIGRAM, PER DAY (0.03 MG/KG/DAY) INFUSION
     Route: 042
  2. FLUDARABINE [Concomitant]
     Active Substance: FLUDARABINE PHOSPHATE
     Indication: ACUTE MYELOID LEUKAEMIA
     Dosage: 160 MILLIGRAM/SQ. METER
     Route: 065
  3. MELPHALAN. [Concomitant]
     Active Substance: MELPHALAN
     Indication: ACUTE MYELOID LEUKAEMIA
     Dosage: 140 MILLIGRAM/SQ. METER
     Route: 065
  4. METHOTREXATE. [Suspect]
     Active Substance: METHOTREXATE
     Indication: PROPHYLAXIS AGAINST GRAFT VERSUS HOST DISEASE
     Dosage: 5 MILLIGRAM/SQ. METER, ON DAY 1, 3,6,11
     Route: 065
  5. TACROLIMUS. [Suspect]
     Active Substance: TACROLIMUS
     Dosage: UNK
     Route: 048
  6. TACROLIMUS. [Suspect]
     Active Substance: TACROLIMUS
     Dosage: UNK
     Route: 048
  7. MYCOPHENOLATE MOFETIL. [Suspect]
     Active Substance: MYCOPHENOLATE MOFETIL
     Indication: PROPHYLAXIS AGAINST GRAFT VERSUS HOST DISEASE
     Dosage: UNK
     Route: 065

REACTIONS (5)
  - Post transplant distal limb syndrome [Recovered/Resolved]
  - Graft versus host disease in gastrointestinal tract [Unknown]
  - Septic shock [Fatal]
  - Pain in extremity [Recovered/Resolved]
  - Off label use [Unknown]
